FAERS Safety Report 9547466 (Version 1)
Quarter: 2013Q2

REPORT INFORMATION
  Report Type: Spontaneous
  Country: US (occurrence: None)
  Receive Date: 20130606
  Receipt Date: 20130606
  Transmission Date: 20140414
  Serious: Yes (Other)
  Sender: FDA-Public Use
  Company Number: 163-POMAL-13050143

PATIENT
  Age: 75 Year
  Sex: Male
  Weight: 70.76 kg

DRUGS (1)
  1. POMALYST (POMALIDOMIDE) (3 MILLIGRAM, CAPSULES) [Suspect]
     Indication: PLASMA CELL MYELOMA
     Dosage: 3MG, 21 IN 21 D, PO
     Route: 048
     Dates: start: 20130411, end: 20130416

REACTIONS (1)
  - Nausea [None]
